FAERS Safety Report 8319968-6 (Version None)
Quarter: 2012Q2

REPORT INFORMATION
  Report Type: 
  Country: None (occurrence: None)
  Receive Date: 20120427
  Receipt Date: 20120417
  Transmission Date: 20120825
  Serious: Yes (Hospitalization)
  Sender: FDA-Public Use
  Company Number: CH-ROCHE-1060879

PATIENT
  Age: 79 Year
  Sex: Male

DRUGS (8)
  1. MABTHERA [Suspect]
     Indication: B-CELL LYMPHOMA
     Dosage: LAST DOSE:21/MAR/2012, TEMPORARILY STOPPED
     Route: 042
     Dates: start: 20111121
  2. PANTOPRAZOLE [Concomitant]
     Route: 048
     Dates: start: 20111116
  3. SOLIFENACIN SUCCINATE [Concomitant]
     Route: 048
     Dates: start: 20110228
  4. PHENPROCOUMON [Concomitant]
     Route: 048
  5. BENDAMUSTINE [Suspect]
     Indication: B-CELL LYMPHOMA
     Dosage: LAST DOSE:22/MAR/2012, TEMPORARILY STOPPED
     Route: 042
     Dates: start: 20111121
  6. TORSEMIDE [Concomitant]
     Route: 048
     Dates: start: 20111213
  7. LENALIDOMIDE [Suspect]
     Indication: B-CELL LYMPHOMA
     Dosage: LAST DOSE:05/APR/2012
     Route: 048
     Dates: start: 20111121
  8. MEPROBAMAT [Concomitant]
     Route: 048
     Dates: start: 20110228

REACTIONS (1)
  - GENERAL PHYSICAL HEALTH DETERIORATION [None]
